FAERS Safety Report 19895806 (Version 1)
Quarter: 2021Q3

REPORT INFORMATION
  Report Type: Spontaneous
  Country: US (occurrence: US)
  Receive Date: 20210928
  Receipt Date: 20210928
  Transmission Date: 20211014
  Serious: No
  Sender: FDA-Public Use
  Company Number: None

PATIENT
  Sex: Female

DRUGS (1)
  1. HUMIRA [Suspect]
     Active Substance: ADALIMUMAB
     Indication: SCLERITIS
     Route: 058
     Dates: start: 20210602, end: 20210927

REACTIONS (3)
  - Influenza like illness [None]
  - Therapy interrupted [None]
  - Weight increased [None]
